FAERS Safety Report 4688937-X (Version None)
Quarter: 2005Q2

REPORT INFORMATION
  Report Type: 
  Country: None (occurrence: None)
  Receive Date: 20050613
  Receipt Date: 20050525
  Transmission Date: 20051028
  Serious: Yes (Hospitalization)
  Sender: FDA-Public Use
  Company Number: JP-ROCHE-405939

PATIENT
  Age: 28 Year
  Sex: Male

DRUGS (7)
  1. ROCEPHIN [Suspect]
     Indication: INFECTION
     Route: 041
     Dates: start: 20050521, end: 20050524
  2. ALLEGRA [Concomitant]
     Route: 048
     Dates: start: 20030415
  3. CORTRIL [Concomitant]
     Route: 048
     Dates: start: 20030415
  4. SENNA EXTRACT [Concomitant]
     Dosage: TRADE NAME REPORTED AS YODEL S.
     Route: 048
     Dates: start: 20030415
  5. HIBON [Concomitant]
     Route: 048
     Dates: start: 20050315, end: 20050524
  6. LIPITOR [Concomitant]
     Route: 048
     Dates: start: 20050517, end: 20050524
  7. FLOMAX [Concomitant]
     Route: 048
     Dates: start: 20050519, end: 20050524

REACTIONS (1)
  - HYPERNATRAEMIA [None]
